FAERS Safety Report 8092909-5 (Version None)
Quarter: 2012Q1

REPORT INFORMATION
  Report Type: 
  Country: None (occurrence: None)
  Receive Date: 20120128
  Receipt Date: 20110804
  Transmission Date: 20120608
  Serious: No
  Sender: FDA-Public Use
  Company Number: US-ABBOTT-11P-163-0844236-00

PATIENT
  Sex: Female

DRUGS (4)
  1. HUMIRA [Suspect]
     Indication: CROHN'S DISEASE
     Dosage: 4 SHOTS, 2 THEN 1
     Dates: start: 20110601
  2. ASACOL [Concomitant]
     Indication: CROHN'S DISEASE
  3. UNKNOWN HORMONE COMPOUND [Concomitant]
     Indication: MENOPAUSE
  4. VITAMIN D [Concomitant]
     Indication: VITAMIN D DEFICIENCY

REACTIONS (2)
  - DYSURIA [None]
  - BLADDER PROLAPSE [None]
